FAERS Safety Report 22006603 (Version 1)
Quarter: 2023Q1

REPORT INFORMATION
  Report Type: Spontaneous
  Country: US (occurrence: None)
  Receive Date: 20230216
  Receipt Date: 20230216
  Transmission Date: 20230418
  Serious: No
  Sender: FDA-Public Use
  Company Number: None

PATIENT
  Age: 65 Year
  Sex: Female
  Weight: 76.2 kg

DRUGS (3)
  1. HUMIRA [Suspect]
     Active Substance: ADALIMUMAB
     Indication: Rheumatoid arthritis
     Dosage: FREQUENCY : EVERY OTHER WEEK;?
     Route: 058
     Dates: start: 202108
  2. TACROLIMUS [Suspect]
     Active Substance: TACROLIMUS
  3. OXYBUTYNIN [Suspect]
     Active Substance: OXYBUTYNIN

REACTIONS (4)
  - Sinus disorder [None]
  - Eye allergy [None]
  - Drug ineffective [None]
  - Urinary tract infection [None]
